FAERS Safety Report 16395431 (Version 2)
Quarter: 2019Q2

REPORT INFORMATION
  Report Type: Spontaneous
  Country: GB (occurrence: GB)
  Receive Date: 20190605
  Receipt Date: 20190617
  Transmission Date: 20190711
  Serious: Yes (Hospitalization, Other)
  Sender: FDA-Public Use
  Company Number: GB-WHANIN PHARM. CO., LTD.-2019M1053270

PATIENT
  Age: 37 Year
  Sex: Female
  Weight: 92.9 kg

DRUGS (10)
  1. CLOZAPINE. [Interacting]
     Active Substance: CLOZAPINE
     Dosage: UNK
     Dates: start: 20031015, end: 20051121
  2. TEICOPLANIN [Interacting]
     Active Substance: TEICOPLANIN
     Indication: OSTEOMYELITIS
     Dosage: 1.1 GRAM, QD
     Route: 040
     Dates: start: 20181101, end: 20181126
  3. TEICOPLANIN [Interacting]
     Active Substance: TEICOPLANIN
     Indication: STAPHYLOCOCCAL OSTEOMYELITIS
  4. CLOZAPINE. [Suspect]
     Active Substance: CLOZAPINE
     Indication: SCHIZOPHRENIA
     Dosage: 325 MILLIGRAM, QD
     Route: 048
     Dates: start: 20031015, end: 20181128
  5. ZAPONEX [Suspect]
     Active Substance: CLOZAPINE
     Indication: PRODUCT USED FOR UNKNOWN INDICATION
     Dosage: 125MG MANE AND 200MG NOCTE   125 MILLIGRAM, AM
     Route: 048
     Dates: start: 20051122, end: 20181126
  6. DAPTOMYCIN. [Concomitant]
     Active Substance: DAPTOMYCIN
     Indication: STAPHYLOCOCCAL OSTEOMYELITIS
     Dosage: UNK
  7. HUMULIN L [Concomitant]
     Active Substance: INSULIN HUMAN
     Indication: TYPE 1 DIABETES MELLITUS
     Dosage: UNK
  8. ZAPONEX [Suspect]
     Active Substance: CLOZAPINE
     Dosage: 125MG MANE AND 200MG NOCTE
     Route: 048
     Dates: start: 20051122, end: 20181126
  9. HYOSCINE [Concomitant]
     Active Substance: SCOPOLAMINE
     Indication: SALIVARY HYPERSECRETION
     Dosage: 300 MICROGRAM, QD
     Route: 048
  10. LISINOPRIL                         /00894002/ [Concomitant]
     Active Substance: LISINOPRIL
     Indication: PRODUCT USED FOR UNKNOWN INDICATION
     Dosage: 5 MILLIGRAM, QD
     Route: 048

REACTIONS (4)
  - Leukopenia [Recovered/Resolved]
  - Neutropenia [Recovered/Resolved]
  - Drug interaction [Recovered/Resolved]
  - Drug monitoring procedure incorrectly performed [Unknown]

NARRATIVE: CASE EVENT DATE: 20181101
